FAERS Safety Report 5670875-7 (Version None)
Quarter: 2008Q1

REPORT INFORMATION
  Report Type: 
  Country: None (occurrence: None)
  Receive Date: 20080318
  Receipt Date: 20080311
  Transmission Date: 20080703
  Serious: Yes (Other)
  Sender: FDA-Public Use
  Company Number: A0620885A

PATIENT
  Sex: Male

DRUGS (10)
  1. REQUIP [Suspect]
     Indication: PARKINSON'S DISEASE
     Dosage: 3MG TWICE PER DAY
     Route: 048
     Dates: start: 20050220, end: 20050701
  2. MIRAPEX [Suspect]
     Indication: PARKINSON'S DISEASE
     Route: 065
     Dates: start: 19980413, end: 20050701
  3. SINEMET [Concomitant]
  4. COMTAN [Concomitant]
     Dosage: 200MG SIX TIMES PER DAY
  5. SYMMETREL [Concomitant]
     Dosage: 100MG THREE TIMES PER DAY
  6. PAMELOR [Concomitant]
     Dosage: 25MG AT NIGHT
  7. COZAAR [Concomitant]
  8. NORVASC [Concomitant]
  9. LIPITOR [Concomitant]
  10. ASPIRIN [Concomitant]

REACTIONS (5)
  - BIPOLAR DISORDER [None]
  - DEPENDENCE [None]
  - MANIA [None]
  - OBSESSIVE-COMPULSIVE DISORDER [None]
  - PATHOLOGICAL GAMBLING [None]
